FAERS Safety Report 4336401-X (Version None)
Quarter: 2004Q2

REPORT INFORMATION
  Report Type: 
  Country: None (occurrence: None)
  Receive Date: 20040407
  Receipt Date: 20040324
  Transmission Date: 20050107
  Serious: Yes (Other)
  Sender: FDA-Public Use
  Company Number: US-JNJFOC-20040305970

PATIENT
  Age: 46 Year
  Sex: Female
  Weight: 58.9676 kg

DRUGS (9)
  1. REMICADE [Suspect]
     Indication: CROHN'S DISEASE
     Dosage: SEE IMAGE
     Route: 042
     Dates: start: 20000101
  2. REMICADE [Suspect]
     Indication: CROHN'S DISEASE
     Dosage: SEE IMAGE
     Route: 042
     Dates: start: 20030801
  3. REMICADE [Suspect]
     Indication: CROHN'S DISEASE
     Dosage: SEE IMAGE
     Route: 042
     Dates: start: 20040202
  4. VITAMIN B 12 (CYANOCOBALAMIN) INJECTION [Concomitant]
  5. MAGNESIUM (MAGNESIUM) INJECTION [Concomitant]
  6. POTASSIUM (POTASSIUM) [Concomitant]
  7. FLAGYL [Concomitant]
  8. PREVACID [Concomitant]
  9. NEURONTIN [Concomitant]

REACTIONS (2)
  - LUPUS-LIKE SYNDROME [None]
  - NEUROPATHY PERIPHERAL [None]
